FAERS Safety Report 15806516 (Version 2)
Quarter: 2019Q1

REPORT INFORMATION
  Report Type: Spontaneous
  Country: US (occurrence: US)
  Receive Date: 20190110
  Receipt Date: 20190129
  Transmission Date: 20190417
  Serious: No
  Sender: FDA-Public Use
  Company Number: US-BAYER-2019-007320

PATIENT
  Age: 48 Year
  Sex: Female

DRUGS (2)
  1. CLIMARA PRO [Suspect]
     Active Substance: ESTRADIOL\LEVONORGESTREL
     Indication: MENOPAUSAL SYMPTOMS PROPHYLAXIS
     Dosage: UNK
     Route: 062
     Dates: start: 201808
  2. PROGESTERONE. [Concomitant]
     Active Substance: PROGESTERONE
     Route: 061

REACTIONS (7)
  - Weight increased [Not Recovered/Not Resolved]
  - Eye swelling [Recovered/Resolved]
  - Product adhesion issue [None]
  - Wrong technique in product usage process [None]
  - Therapeutic response shortened [None]
  - Drug tolerance decreased [Recovered/Resolved]
  - Wrong technique in product usage process [None]

NARRATIVE: CASE EVENT DATE: 201808
